FAERS Safety Report 11697329 (Version 2)
Quarter: 2015Q4

REPORT INFORMATION
  Report Type: Report from Study
  Country: US (occurrence: US)
  Receive Date: 20151104
  Receipt Date: 20151223
  Transmission Date: 20160304
  Serious: Yes (Other)
  Sender: FDA-Public Use
  Company Number: US-AMGEN-USASL2015113591

PATIENT
  Age: 55 Year
  Sex: Male

DRUGS (1)
  1. ENBREL [Suspect]
     Active Substance: ETANERCEPT
     Indication: RHEUMATOID ARTHRITIS
     Dosage: 50 MG, QWK
     Route: 065
     Dates: start: 20150930

REACTIONS (9)
  - Arthralgia [Unknown]
  - Musculoskeletal pain [Unknown]
  - Skin ulcer [Unknown]
  - Hot flush [Unknown]
  - Fatigue [Unknown]
  - Dizziness [Unknown]
  - Tendon operation [Unknown]
  - Pain in extremity [Unknown]
  - Rash papular [Unknown]

NARRATIVE: CASE EVENT DATE: 201512
